FAERS Safety Report 18863929 (Version 3)
Quarter: 2021Q3

REPORT INFORMATION
  Report Type: Report from Study
  Country: NL (occurrence: NL)
  Receive Date: 20210208
  Receipt Date: 20210922
  Transmission Date: 20211014
  Serious: Yes (Hospitalization)
  Sender: FDA-Public Use
  Company Number: NL-BRISTOL-MYERS SQUIBB COMPANY-BMS-2021-010698

PATIENT
  Age: 72 Year
  Sex: Male

DRUGS (2)
  1. IPILIMUMAB [Suspect]
     Active Substance: IPILIMUMAB
     Indication: RENAL CELL CARCINOMA
     Dosage: 84 MILLIGRAM
     Route: 042
     Dates: start: 20210118, end: 20210118
  2. NIVOLUMAB [Suspect]
     Active Substance: NIVOLUMAB
     Indication: RENAL CELL CARCINOMA
     Dosage: 252 MILLIGRAM
     Route: 042
     Dates: start: 20210118, end: 20210118

REACTIONS (1)
  - Neck mass [Recovered/Resolved with Sequelae]

NARRATIVE: CASE EVENT DATE: 20210127
